FAERS Safety Report 16859112 (Version 3)
Quarter: 2020Q3

REPORT INFORMATION
  Report Type: Other
  Country: US (occurrence: US)
  Receive Date: 20190926
  Receipt Date: 20200925
  Transmission Date: 20201102
  Serious: Yes (Death, Hospitalization)
  Sender: FDA-Public Use
  Company Number: US-VERASTEM-2019-00093

PATIENT

DRUGS (5)
  1. OFATUMUMAB [Concomitant]
     Active Substance: OFATUMUMAB
     Indication: PRODUCT USED FOR UNKNOWN INDICATION
     Dosage: UNK
  2. VELCADE [Concomitant]
     Active Substance: BORTEZOMIB
     Indication: PRODUCT USED FOR UNKNOWN INDICATION
     Dosage: UNK
  3. COPIKTRA [Suspect]
     Active Substance: DUVELISIB
     Dosage: 25 MG, BID
     Route: 048
     Dates: start: 20191106, end: 20191205
  4. COPIKTRA [Suspect]
     Active Substance: DUVELISIB
     Indication: WALDENSTROM^S MACROGLOBULINAEMIA
     Dosage: 25 MG, BID
     Route: 048
     Dates: start: 20190606, end: 201909
  5. COPIKTRA [Suspect]
     Active Substance: DUVELISIB
     Dosage: 25 MG, BID
     Route: 048
     Dates: start: 20191222

REACTIONS (7)
  - Pneumonia [Recovered/Resolved]
  - Viral infection [Unknown]
  - Constipation [Not Recovered/Not Resolved]
  - Malignant neoplasm progression [Fatal]
  - Dry skin [Not Recovered/Not Resolved]
  - Diarrhoea [Not Recovered/Not Resolved]
  - Product use in unapproved indication [Not Recovered/Not Resolved]

NARRATIVE: CASE EVENT DATE: 2019
